FAERS Safety Report 4772081-7 (Version None)
Quarter: 2005Q3

REPORT INFORMATION
  Report Type: 
  Country: None (occurrence: None)
  Receive Date: 20050918
  Receipt Date: 20050527
  Transmission Date: 20060218
  Serious: Yes (Hospitalization, Disabling)
  Sender: FDA-Public Use
  Company Number: US-MERCK-0505USA03431

PATIENT
  Age: 41 Year
  Sex: Male
  Weight: 86 kg

DRUGS (26)
  1. VIOXX [Suspect]
     Indication: OSTEOARTHRITIS
     Route: 048
     Dates: start: 20000409, end: 20000601
  2. VIOXX [Suspect]
     Route: 048
     Dates: start: 20000601, end: 20000619
  3. VIOXX [Suspect]
     Route: 048
     Dates: start: 20000620, end: 20040930
  4. VIOXX [Suspect]
     Indication: PROSTATITIS
     Route: 048
     Dates: start: 20000409, end: 20000601
  5. VIOXX [Suspect]
     Route: 048
     Dates: start: 20000601, end: 20000619
  6. VIOXX [Suspect]
     Route: 048
     Dates: start: 20000620, end: 20040930
  7. OXYCONTIN [Concomitant]
     Indication: OSTEOARTHRITIS
     Route: 048
     Dates: start: 20000901
  8. OXYCONTIN [Concomitant]
     Indication: BACK PAIN
     Route: 048
     Dates: start: 20000901
  9. LEVAQUIN [Concomitant]
     Indication: OSTEOARTHRITIS
     Route: 065
     Dates: start: 20000405
  10. LEVAQUIN [Concomitant]
     Indication: BACK PAIN
     Route: 065
     Dates: start: 20000405
  11. ULTRAM [Concomitant]
     Indication: OSTEOARTHRITIS
     Route: 065
     Dates: start: 20000501
  12. ULTRAM [Concomitant]
     Indication: BACK PAIN
     Route: 065
     Dates: start: 20000501
  13. ACETAMINOPHEN AND CODEINE PHOSPHATE [Concomitant]
     Indication: OSTEOARTHRITIS
     Route: 065
     Dates: start: 20000701
  14. ACETAMINOPHEN AND CODEINE PHOSPHATE [Concomitant]
     Indication: BACK PAIN
     Route: 065
     Dates: start: 20000701
  15. STROVITE [Concomitant]
     Indication: VITAMIN SUPPLEMENTATION
     Route: 065
  16. VICODIN [Concomitant]
     Indication: OSTEOARTHRITIS
     Route: 048
     Dates: start: 20000601, end: 20040301
  17. VICODIN [Concomitant]
     Route: 048
     Dates: start: 20040101
  18. VICODIN [Concomitant]
     Indication: BACK PAIN
     Route: 048
     Dates: start: 20000601, end: 20040301
  19. VICODIN [Concomitant]
     Route: 048
     Dates: start: 20040101
  20. MOTRIN [Concomitant]
     Indication: OSTEOARTHRITIS
     Route: 065
     Dates: start: 20000201
  21. MOTRIN [Concomitant]
     Indication: BACK PAIN
     Route: 065
     Dates: start: 20000201
  22. DARVOCET-N 100 [Concomitant]
     Indication: OSTEOARTHRITIS
     Route: 065
     Dates: start: 20000501
  23. DARVOCET-N 100 [Concomitant]
     Indication: BACK PAIN
     Route: 065
     Dates: start: 20000501
  24. AMITRIPTYLINE HYDROCHLORIDE [Concomitant]
     Route: 065
  25. ZITHROMAX [Concomitant]
     Route: 065
  26. CILOXAN [Concomitant]
     Route: 001

REACTIONS (12)
  - BLOOD CHOLESTEROL INCREASED [None]
  - CERVICOBRACHIAL SYNDROME [None]
  - COMPRESSION FRACTURE [None]
  - CORONARY ARTERY DISEASE [None]
  - CORONARY ARTERY STENOSIS [None]
  - DRUG INEFFECTIVE [None]
  - HAEMATOCHEZIA [None]
  - HEADACHE [None]
  - LUMBAR RADICULOPATHY [None]
  - MYOCARDIAL INFARCTION [None]
  - SPINAL COMPRESSION FRACTURE [None]
  - VENTRICULAR HYPOKINESIA [None]
